FAERS Safety Report 8072044-2 (Version None)
Quarter: 2012Q1

REPORT INFORMATION
  Report Type: 
  Country: None (occurrence: None)
  Receive Date: 20120126
  Receipt Date: 20120118
  Transmission Date: 20120608
  Serious: Yes (Hospitalization)
  Sender: FDA-Public Use
  Company Number: IT-TEVA-318577ISR

PATIENT
  Sex: Female

DRUGS (1)
  1. RIBAVIRIN [Suspect]

REACTIONS (1)
  - BRONCHOPULMONARY DISEASE [None]
